FAERS Safety Report 20159836 (Version 1)
Quarter: 2021Q4

REPORT INFORMATION
  Report Type: Spontaneous
  Country: CA (occurrence: CA)
  Receive Date: 20211208
  Receipt Date: 20211208
  Transmission Date: 20220304
  Serious: Yes (Hospitalization, Other)
  Sender: FDA-Public Use
  Company Number: CA-TEVA-2021-CA-1984548

PATIENT
  Age: 10 Year
  Sex: Male

DRUGS (3)
  1. HYDROMORPHONE [Suspect]
     Active Substance: HYDROMORPHONE
     Indication: Femur fracture
     Route: 065
  2. IBUPROFEN [Suspect]
     Active Substance: IBUPROFEN
     Indication: Femur fracture
     Dosage: 24 MILLIGRAM DAILY;
     Route: 065
  3. HYDROCORTISONE [Concomitant]
     Active Substance: HYDROCORTISONE
     Indication: Diabetes insipidus
     Dosage: 12 MILLIGRAM DAILY;
     Route: 048

REACTIONS (8)
  - Blood sodium decreased [Recovered/Resolved]
  - Apnoea [Recovered/Resolved]
  - Bruxism [Recovered/Resolved]
  - Hypernatraemia [Recovered/Resolved]
  - Hypertonia [Recovered/Resolved]
  - Lethargy [Recovered/Resolved]
  - Seizure [Recovered/Resolved]
  - Unresponsive to stimuli [Recovered/Resolved]
